FAERS Safety Report 11006849 (Version 1)
Quarter: 2015Q2

REPORT INFORMATION
  Report Type: Spontaneous
  Country: US (occurrence: US)
  Receive Date: 20150409
  Receipt Date: 20150409
  Transmission Date: 20150821
  Serious: No
  Sender: FDA-Public Use
  Company Number: US-ALLERGAN-1418616US

PATIENT
  Sex: Female

DRUGS (2)
  1. PERMANENT MAKE UP [Concomitant]
  2. LATISSE [Suspect]
     Active Substance: BIMATOPROST
     Indication: GROWTH OF EYELASHES
     Dosage: UNK, SINGLE
     Route: 061
     Dates: start: 20140824

REACTIONS (2)
  - Application site discolouration [Unknown]
  - Expired product administered [Unknown]

NARRATIVE: CASE EVENT DATE: 20140825
